FAERS Safety Report 25667923 (Version 1)
Quarter: 2025Q3

REPORT INFORMATION
  Report Type: Spontaneous
  Country: US (occurrence: US)
  Receive Date: 20250812
  Receipt Date: 20250812
  Transmission Date: 20251020
  Serious: No
  Sender: ENDO
  Company Number: US-ENDO USA, INC.-2025-001296

PATIENT
  Sex: Male

DRUGS (6)
  1. TESTOPEL [Suspect]
     Active Substance: TESTOSTERONE
     Indication: Product used for unknown indication
     Route: 065
     Dates: start: 20250417
  2. TESTOPEL [Suspect]
     Active Substance: TESTOSTERONE
     Indication: Product used for unknown indication
     Route: 065
     Dates: start: 20250417
  3. TESTOPEL [Suspect]
     Active Substance: TESTOSTERONE
     Indication: Product used for unknown indication
     Route: 065
     Dates: start: 20250417
  4. TESTOPEL [Suspect]
     Active Substance: TESTOSTERONE
     Route: 051
     Dates: start: 2025
  5. TESTOPEL [Suspect]
     Active Substance: TESTOSTERONE
     Route: 051
     Dates: start: 2025
  6. TESTOPEL [Suspect]
     Active Substance: TESTOSTERONE
     Route: 051
     Dates: start: 2025

REACTIONS (7)
  - Lip swelling [Not Recovered/Not Resolved]
  - Skin mass [Not Recovered/Not Resolved]
  - Lip disorder [Not Recovered/Not Resolved]
  - Blood testosterone decreased [Unknown]
  - Acne [Not Recovered/Not Resolved]
  - Expulsion of medication [Unknown]
  - Off label use [Unknown]

NARRATIVE: CASE EVENT DATE: 20250101
